FAERS Safety Report 7417988-7 (Version None)
Quarter: 2011Q2

REPORT INFORMATION
  Report Type: 
  Country: None (occurrence: None)
  Receive Date: 20110415
  Receipt Date: 20110406
  Transmission Date: 20111010
  Serious: Yes (Hospitalization)
  Sender: FDA-Public Use
  Company Number: BR-ASTRAZENECA-2011SE19910

PATIENT
  Age: 33 Year
  Sex: Female

DRUGS (1)
  1. SYMBICORT [Suspect]
     Indication: BRONCHITIS
     Dosage: 320/9 MCG BID
     Route: 055
     Dates: start: 20010101

REACTIONS (2)
  - DIABETES MELLITUS [None]
  - PNEUMONIA [None]
